FAERS Safety Report 9631804 (Version 1)
Quarter: 2013Q4

REPORT INFORMATION
  Report Type: Spontaneous
  Country: FR (occurrence: FR)
  Receive Date: 20131018
  Receipt Date: 20131018
  Transmission Date: 20140711
  Serious: Yes (Other)
  Sender: FDA-Public Use
  Company Number: FR-PFIZER INC-2013294458

PATIENT
  Age: 74 Year
  Sex: Male

DRUGS (7)
  1. LYRICA [Suspect]
     Indication: SCIATICA
     Dosage: 225 MG, DAILY
     Route: 048
     Dates: start: 201304, end: 201309
  2. RAMIPRIL [Concomitant]
     Indication: HYPERTENSION
     Dosage: UNK
     Route: 048
     Dates: start: 2013, end: 2013
  3. LASILIX [Concomitant]
     Indication: HYPERTENSION
     Dosage: UNK
     Dates: start: 2013
  4. INIPOMP [Concomitant]
     Dosage: UNK
     Route: 048
     Dates: start: 2013
  5. XATRAL [Concomitant]
     Indication: PROSTATIC ADENOMA
     Dosage: UNK
     Route: 048
  6. CHIBRO-PROSCAR [Concomitant]
     Indication: PROSTATIC ADENOMA
     Dosage: UNK
     Route: 048
  7. DOMPERIDONE [Concomitant]
     Dosage: UNK
     Route: 048

REACTIONS (6)
  - Generalised oedema [Recovering/Resolving]
  - Weight increased [Recovering/Resolving]
  - Swelling face [Recovering/Resolving]
  - Glomerular filtration rate abnormal [Unknown]
  - Haemoglobin decreased [Unknown]
  - Blood creatinine increased [Unknown]
